FAERS Safety Report 5285735-3 (Version None)
Quarter: 2007Q1

REPORT INFORMATION
  Report Type: 
  Country: None (occurrence: None)
  Receive Date: 20070130
  Receipt Date: 20060930
  Transmission Date: 20070707
  Serious: Yes (Hospitalization)
  Sender: FDA-Public Use
  Company Number: 2006RL000349

PATIENT
  Age: 54 Year
  Sex: Male

DRUGS (2)
  1. PROPAFENONE HCL [Suspect]
     Indication: ATRIAL FIBRILLATION
     Dosage: PO
     Route: 048
     Dates: start: 20051119, end: 20051119
  2. HEPARIN-FRACTION, SODIUM SALT [Concomitant]

REACTIONS (4)
  - ABDOMINAL PAIN UPPER [None]
  - BRADYCARDIA [None]
  - DIARRHOEA [None]
  - HYPOTENSION [None]
